FAERS Safety Report 7231342-2 (Version None)
Quarter: 2011Q1

REPORT INFORMATION
  Report Type: 
  Country: None (occurrence: None)
  Receive Date: 20110118
  Receipt Date: 20110106
  Transmission Date: 20110831
  Serious: Yes (Hospitalization)
  Sender: FDA-Public Use
  Company Number: FR-CELGENEUS-056-C5013-10092633

PATIENT
  Sex: Female

DRUGS (6)
  1. KARDEGIC [Concomitant]
     Route: 048
     Dates: start: 20090515
  2. KARDEGIC [Concomitant]
     Route: 065
     Dates: start: 20100902
  3. DEXAMETHASONE [Suspect]
     Indication: MULTIPLE MYELOMA
     Route: 065
     Dates: start: 20090515
  4. CC-5013 [Suspect]
     Route: 048
     Dates: start: 20100902, end: 20100923
  5. CC-5013 [Suspect]
     Indication: MULTIPLE MYELOMA
     Route: 048
     Dates: start: 20090515
  6. DEXAMETHASONE [Suspect]
     Route: 065
     Dates: start: 20100902, end: 20100923

REACTIONS (2)
  - WRIST FRACTURE [None]
  - BACK PAIN [None]
